FAERS Safety Report 25983066 (Version 1)
Quarter: 2025Q4

REPORT INFORMATION
  Report Type: Report from Study
  Country: US (occurrence: US)
  Receive Date: 20251031
  Receipt Date: 20251031
  Transmission Date: 20260117
  Serious: Yes (Other)
  Sender: ACADIA PHARMACEUTICALS
  Company Number: US-ACADIA PHARMACEUTICALS INC.-ACA-2025-PIM-011632

PATIENT
  Age: 79 Year
  Sex: Male

DRUGS (12)
  1. NUPLAZID [Suspect]
     Active Substance: PIMAVANSERIN TARTRATE
     Indication: Parkinson^s disease psychosis
     Dosage: 34 MILLIGRAM, QD
     Route: 048
     Dates: start: 20240830
  2. METFORMIN [Concomitant]
     Active Substance: METFORMIN HYDROCHLORIDE
  3. GLIPIZIDE [Concomitant]
     Active Substance: GLIPIZIDE
  4. BUPROPION [Concomitant]
     Active Substance: BUPROPION
  5. MEMANTINE [Concomitant]
     Active Substance: MEMANTINE
  6. TRIAMTERENE [Concomitant]
     Active Substance: TRIAMTERENE
  7. DONEPEZIL [Concomitant]
     Active Substance: DONEPEZIL
  8. ESCITALOPRAM [Concomitant]
     Active Substance: ESCITALOPRAM OXALATE
  9. TAMSULOSIN [Concomitant]
     Active Substance: TAMSULOSIN
  10. SIMVASTATIN [Concomitant]
     Active Substance: SIMVASTATIN
  11. FINASTERIDE [Concomitant]
     Active Substance: FINASTERIDE
  12. MELATONIN [Concomitant]
     Active Substance: MELATONIN
     Dosage: UNK

REACTIONS (2)
  - Parkinson^s disease [Not Recovered/Not Resolved]
  - Urinary tract infection [Not Recovered/Not Resolved]

NARRATIVE: CASE EVENT DATE: 20251017
